FAERS Safety Report 4359430-9 (Version None)
Quarter: 2004Q2

REPORT INFORMATION
  Report Type: 
  Country: None (occurrence: None)
  Receive Date: 20040512
  Receipt Date: 20040423
  Transmission Date: 20050107
  Serious: Yes (Congenital Anomaly)
  Sender: FDA-Public Use
  Company Number: GBS040414830

PATIENT
  Sex: 0

DRUGS (1)
  1. FLUOXETINE [Suspect]
     Dates: start: 20040226, end: 20040402

REACTIONS (3)
  - ABORTION INDUCED [None]
  - MATERNAL DRUGS AFFECTING FOETUS [None]
  - NEURAL TUBE DEFECT [None]
